FAERS Safety Report 15353483 (Version 1)
Quarter: 2018Q3

REPORT INFORMATION
  Report Type: Spontaneous
  Country: US (occurrence: US)
  Receive Date: 20180905
  Receipt Date: 20180905
  Transmission Date: 20181010
  Serious: No
  Sender: FDA-Public Use
  Company Number: US-BAYER-2018-163143

PATIENT
  Age: 49 Year
  Sex: Female

DRUGS (1)
  1. BETASERON [Suspect]
     Active Substance: INTERFERON BETA-1B
     Indication: MULTIPLE SCLEROSIS
     Dosage: 075 MG, UNK
     Route: 058
     Dates: start: 201807

REACTIONS (3)
  - Adverse reaction [Not Recovered/Not Resolved]
  - Product physical consistency issue [None]
  - Drug dose omission [None]

NARRATIVE: CASE EVENT DATE: 201808
